FAERS Safety Report 7707758-4 (Version None)
Quarter: 2011Q3

REPORT INFORMATION
  Report Type: 
  Country: None (occurrence: None)
  Receive Date: 20110824
  Receipt Date: 20110819
  Transmission Date: 20111222
  Serious: Yes (Other)
  Sender: FDA-Public Use
  Company Number: US-ABBOTT-11P-163-0848216-00

PATIENT
  Sex: Male
  Weight: 136.2 kg

DRUGS (8)
  1. ASPIRIN [Concomitant]
     Indication: CARDIAC DISORDER
  2. GLIMEPIRIDE [Concomitant]
     Indication: DIABETES MELLITUS
  3. FISH OIL [Concomitant]
     Indication: SUPPLEMENTATION THERAPY
  4. LOSARTAN [Concomitant]
     Indication: HYPERTENSION
  5. COZAAR [Concomitant]
     Indication: HYPERTENSION
  6. ANDROGEL [Suspect]
     Indication: BLOOD TESTOSTERONE DECREASED
     Dosage: 8 PUMPS A DAY
     Route: 061
     Dates: start: 20070101
  7. UNKNOWN STATIN (NON-ABBOTT) [Suspect]
     Indication: CARDIAC DISORDER
  8. METOPROLOL [Concomitant]
     Indication: HYPERTENSION

REACTIONS (9)
  - RASH ERYTHEMATOUS [None]
  - PAIN IN EXTREMITY [None]
  - RASH MACULAR [None]
  - MYOCARDIAL INFARCTION [None]
  - CARDIAC ARREST [None]
  - RASH PAPULAR [None]
  - MYALGIA [None]
  - RASH [None]
  - PRURITUS [None]
